FAERS Safety Report 13345535 (Version 3)
Quarter: 2017Q2

REPORT INFORMATION
  Report Type: Report from Study
  Country: US (occurrence: US)
  Receive Date: 20170317
  Receipt Date: 20170413
  Transmission Date: 20170830
  Serious: Yes (Hospitalization, Other)
  Sender: FDA-Public Use
  Company Number: US-GILEAD-2017-0262266

PATIENT
  Age: 60 Year
  Sex: Female

DRUGS (5)
  1. SILDENAFIL CITRATE. [Concomitant]
     Active Substance: SILDENAFIL CITRATE
  2. VELETRI [Suspect]
     Active Substance: EPOPROSTENOL
     Indication: PRODUCT USED FOR UNKNOWN INDICATION
     Route: 065
  3. COUMADIN [Concomitant]
     Active Substance: WARFARIN SODIUM
  4. AMBRISENTAN [Suspect]
     Active Substance: AMBRISENTAN
     Indication: PRODUCT USED FOR UNKNOWN INDICATION
     Dosage: 10 MG, QD
     Route: 065
  5. VENTAVIS [Concomitant]
     Active Substance: ILOPROST

REACTIONS (5)
  - Headache [Not Recovered/Not Resolved]
  - Dyspnoea [Unknown]
  - Pain in jaw [Not Recovered/Not Resolved]
  - Pulmonary hypertension [Unknown]
  - Peripheral swelling [Unknown]
